FAERS Safety Report 9451000 (Version 1)
Quarter: 2013Q3

REPORT INFORMATION
  Report Type: Spontaneous
  Country: BE (occurrence: BE)
  Receive Date: 20130809
  Receipt Date: 20130809
  Transmission Date: 20140515
  Serious: Yes (Other)
  Sender: FDA-Public Use
  Company Number: BE-CELGENEUS-013-20785-13074568

PATIENT
  Sex: Male

DRUGS (5)
  1. THALIDOMIDE CELGENE [Suspect]
     Indication: MYELODYSPLASTIC SYNDROME
     Dosage: 200 MILLIGRAM
     Route: 048
     Dates: start: 200511
  2. THALIDOMIDE CELGENE [Suspect]
     Dosage: 50 MILLIGRAM
     Route: 048
     Dates: start: 200608
  3. THALIDOMIDE CELGENE [Suspect]
     Dosage: 150 MILLIGRAM
     Route: 048
     Dates: start: 200804
  4. THALIDOMIDE CELGENE [Suspect]
     Dosage: 100 MILLIGRAM
     Route: 048
  5. THALIDOMIDE CELGENE [Suspect]
     Dosage: 50 MILLIGRAM
     Route: 048

REACTIONS (4)
  - Pancytopenia [Unknown]
  - Condition aggravated [Unknown]
  - Anaemia [Unknown]
  - Calculus urinary [Unknown]
